FAERS Safety Report 20893841 (Version 1)
Quarter: 2022Q2

REPORT INFORMATION
  Report Type: Report from Study
  Country: RO (occurrence: RO)
  Receive Date: 20220531
  Receipt Date: 20220531
  Transmission Date: 20220721
  Serious: Yes (Hospitalization)
  Sender: FDA-Public Use
  Company Number: RO-ABBVIE-22K-135-4410746-00

PATIENT
  Age: 63 Year
  Sex: Female

DRUGS (6)
  1. HUMIRA [Suspect]
     Active Substance: ADALIMUMAB
     Indication: Crohn^s disease
     Route: 058
     Dates: start: 20161015
  2. ENALAPRIL [Concomitant]
     Active Substance: ENALAPRIL
     Indication: Hypertension
     Dosage: PRIOR TO HUMIRA THERAPY
     Route: 048
  3. METOPROLOL TARTRATE [Concomitant]
     Active Substance: METOPROLOL TARTRATE
     Indication: Hypertension
     Dosage: PRIOR TO HUMIRA THERAPY
     Route: 048
  4. DETRICAL [Concomitant]
     Indication: Gastric disorder
     Dosage: PRIOR TO HUMIRA THERAPY
     Route: 048
  5. NITROPECTOR [Concomitant]
     Indication: Product used for unknown indication
     Dosage: PRIOR TO HUMIRA THERAPY
     Route: 048
  6. ESSENTIALE MAX [Concomitant]
     Indication: Prophylaxis
     Dosage: PRIOR TO HUMIRA THERAPY
     Route: 048

REACTIONS (3)
  - Medical device site injury [Recovering/Resolving]
  - Skin discolouration [Not Recovered/Not Resolved]
  - Pruritus [Not Recovered/Not Resolved]

NARRATIVE: CASE EVENT DATE: 20220201
